FAERS Safety Report 4907412-8 (Version None)
Quarter: 2006Q1

REPORT INFORMATION
  Report Type: 
  Country: None (occurrence: None)
  Receive Date: 20060208
  Receipt Date: 20060208
  Transmission Date: 20060701
  Serious: Yes (Hospitalization)
  Sender: FDA-Public Use
  Company Number: None

PATIENT
  Age: 72 Year
  Sex: Male

DRUGS (8)
  1. METOPROLOL [Suspect]
     Indication: HYPERTENSION
     Dosage: 100 MG QAM AND 75 MG Q PM
     Dates: start: 20050927
  2. LOSARTAN POTASSIUM [Suspect]
     Indication: HYPERTENSION
     Dosage: 25 MC QD
     Dates: start: 20050927
  3. FUROSEMIDE [Concomitant]
  4. ISOSORBIDE [Concomitant]
  5. NITROGLYCERIN [Concomitant]
  6. POTASSIUM CHLORIDE [Concomitant]
  7. ZOCOR [Concomitant]
  8. SUCRALFATE [Concomitant]

REACTIONS (1)
  - HYPOTENSION [None]
